FAERS Safety Report 22604974 (Version 1)
Quarter: 2023Q2

REPORT INFORMATION
  Report Type: Spontaneous
  Country: US (occurrence: US)
  Receive Date: 20230615
  Receipt Date: 20230615
  Transmission Date: 20230722
  Serious: No
  Sender: FDA-Public Use
  Company Number: US-SA-SAC20230612000939

PATIENT
  Sex: Female

DRUGS (14)
  1. DUPIXENT [Suspect]
     Active Substance: DUPILUMAB
     Indication: Asthma
     Dosage: 300 MG, QOW
     Route: 058
     Dates: start: 20210119
  2. BUDESONIDE [Concomitant]
     Active Substance: BUDESONIDE
  3. CROMOLYN SODIUM [Concomitant]
     Active Substance: CROMOLYN SODIUM
  4. HIZENTRA [Concomitant]
     Active Substance: HUMAN IMMUNOGLOBULIN G
  5. LEVOTHYROXINE [Concomitant]
     Active Substance: LEVOTHYROXINE
  6. LIDOCAINE;PROCAINE [Concomitant]
  7. PERFOROMIST [Concomitant]
     Active Substance: FORMOTEROL FUMARATE DIHYDRATE
  8. THEOPHYLLINE [Concomitant]
     Active Substance: THEOPHYLLINE
  9. AZELASTINE [Concomitant]
     Active Substance: AZELASTINE
  10. SPIRIVA [Concomitant]
     Active Substance: TIOTROPIUM BROMIDE MONOHYDRATE
  11. LEVALBUTEROL [Concomitant]
     Active Substance: LEVALBUTEROL
  12. SPIRONOLACTONE [Concomitant]
     Active Substance: SPIRONOLACTONE
  13. METOCLOPRAMIDE [Concomitant]
     Active Substance: METOCLOPRAMIDE
  14. BUDESONIDE [Concomitant]
     Active Substance: BUDESONIDE

REACTIONS (3)
  - Impaired quality of life [Not Recovered/Not Resolved]
  - Product dose omission in error [Unknown]
  - Drug ineffective [Unknown]
